FAERS Safety Report 16796008 (Version 7)
Quarter: 2022Q3

REPORT INFORMATION
  Report Type: Report from Study
  Country: CN (occurrence: CN)
  Receive Date: 20190911
  Receipt Date: 20220823
  Transmission Date: 20221026
  Serious: Yes (Life-Threatening, Other)
  Sender: FDA-Public Use
  Company Number: CN-JNJFOC-20190900322

PATIENT
  Age: 47 Year
  Sex: Male
  Weight: 51 kg

DRUGS (11)
  1. SIRTURO [Suspect]
     Active Substance: BEDAQUILINE FUMARATE
     Indication: Tuberculosis
     Route: 048
     Dates: start: 20190807, end: 20190821
  2. SIRTURO [Suspect]
     Active Substance: BEDAQUILINE FUMARATE
     Route: 048
     Dates: start: 20190821, end: 20191003
  3. SIRTURO [Suspect]
     Active Substance: BEDAQUILINE FUMARATE
     Route: 048
     Dates: start: 20191023
  4. MOXIFLOXACIN [Suspect]
     Active Substance: MOXIFLOXACIN
     Indication: Tuberculosis
     Route: 048
     Dates: start: 20190809, end: 20191002
  5. MOXIFLOXACIN [Suspect]
     Active Substance: MOXIFLOXACIN
     Route: 048
     Dates: start: 20191125
  6. LINEZOLID [Suspect]
     Active Substance: LINEZOLID
     Indication: Tuberculosis
     Route: 048
     Dates: start: 20190807
  7. CYCLOSERINE [Suspect]
     Active Substance: CYCLOSERINE
     Indication: Tuberculosis
     Route: 048
     Dates: start: 20190807
  8. CLOFAZIMINE [Suspect]
     Active Substance: CLOFAZIMINE
     Indication: Tuberculosis
     Route: 048
     Dates: start: 20190807
  9. AMIKACIN [Suspect]
     Active Substance: AMIKACIN
     Indication: Tuberculosis
     Route: 065
     Dates: start: 20190807
  10. AMINOSALICYLIC ACID [Suspect]
     Active Substance: AMINOSALICYLIC ACID
     Indication: Tuberculosis
     Route: 048
     Dates: start: 20190825
  11. LECITHIN [Concomitant]
     Active Substance: LECITHIN
     Indication: Product used for unknown indication
     Route: 065
     Dates: start: 20190822

REACTIONS (2)
  - Electrocardiogram QT prolonged [Recovering/Resolving]
  - Hepatotoxicity [Recovering/Resolving]

NARRATIVE: CASE EVENT DATE: 20190821
